FAERS Safety Report 10222053 (Version 1)
Quarter: 2014Q2

REPORT INFORMATION
  Report Type: Report from Study
  Country: IT (occurrence: IT)
  Receive Date: 20140606
  Receipt Date: 20140606
  Transmission Date: 20141212
  Serious: No
  Sender: FDA-Public Use
  Company Number: IT-BIOMARINAP-IT-2014-102664

PATIENT
  Age: 19 Year
  Sex: Female

DRUGS (2)
  1. NAGLAZYME [Suspect]
     Indication: MUCOPOLYSACCHARIDOSIS VI
     Dosage: 1 MG/KG, QW
     Route: 041
     Dates: start: 20030918
  2. RAMIPRIL [Concomitant]
     Indication: MITRAL VALVE INCOMPETENCE
     Dosage: 1.25 MG, QD
     Route: 048
     Dates: start: 201311

REACTIONS (1)
  - Abdominal pain upper [Recovered/Resolved]
